FAERS Safety Report 10463140 (Version 7)
Quarter: 2016Q1

REPORT INFORMATION
  Report Type: Report from Study
  Country: DE (occurrence: DE)
  Receive Date: 20140919
  Receipt Date: 20160217
  Transmission Date: 20160525
  Serious: Yes (Other)
  Sender: FDA-Public Use
  Company Number: DE-ROCHE-1463680

PATIENT
  Age: 71 Year
  Sex: Female
  Weight: 83 kg

DRUGS (8)
  1. ROACTEMRA [Suspect]
     Active Substance: TOCILIZUMAB
     Indication: RHEUMATOID ARTHRITIS
     Route: 042
     Dates: start: 2010, end: 201404
  2. ROACTEMRA [Suspect]
     Active Substance: TOCILIZUMAB
     Route: 058
     Dates: end: 20151111
  3. FOLIC ACID. [Concomitant]
     Active Substance: FOLIC ACID
     Route: 065
  4. METHOTREXATE [Concomitant]
     Active Substance: METHOTREXATE
     Indication: RHEUMATOID ARTHRITIS
     Route: 048
     Dates: start: 20051208
  5. INSULIN [Concomitant]
     Active Substance: INSULIN NOS
  6. ROACTEMRA [Suspect]
     Active Substance: TOCILIZUMAB
     Indication: RHEUMATOID ARTHRITIS
     Route: 058
     Dates: start: 20140512
  7. KORTISON [Concomitant]
     Active Substance: CORTISONE ACETATE
     Indication: RHEUMATOID ARTHRITIS
     Route: 065
  8. OXYCODON [Concomitant]
     Active Substance: OXYCODONE
     Indication: PAIN

REACTIONS (6)
  - Peripheral swelling [Unknown]
  - Osteoporosis [Unknown]
  - Nasopharyngitis [Not Recovered/Not Resolved]
  - Rheumatoid arthritis [Recovered/Resolved]
  - Spinal fracture [Unknown]
  - Arthralgia [Recovering/Resolving]

NARRATIVE: CASE EVENT DATE: 20150312
